FAERS Safety Report 8096989-2 (Version None)
Quarter: 2012Q1

REPORT INFORMATION
  Report Type: 
  Country: None (occurrence: None)
  Receive Date: 20120129
  Receipt Date: 20111205
  Transmission Date: 20120608
  Serious: No
  Sender: FDA-Public Use
  Company Number: US-ABBOTT-11P-163-0880800-00

PATIENT
  Sex: Male

DRUGS (1)
  1. HUMIRA [Suspect]
     Indication: CROHN'S DISEASE
     Dosage: MAINTENANCE DOSE: ON DAY 29 THEN EVERY OTHER WEEK THEREAFTER
     Route: 058
     Dates: start: 20111101

REACTIONS (4)
  - FATIGUE [None]
  - MUSCULAR WEAKNESS [None]
  - ARTHRALGIA [None]
  - ASTHENIA [None]
